FAERS Safety Report 7900345-4 (Version None)
Quarter: 2011Q4

REPORT INFORMATION
  Report Type: 
  Country: None (occurrence: None)
  Receive Date: 20111108
  Receipt Date: 20111030
  Transmission Date: 20120403
  Serious: Yes (Other)
  Sender: FDA-Public Use
  Company Number: US-PFIZER INC-2011226049

PATIENT
  Sex: Male
  Weight: 98.413 kg

DRUGS (22)
  1. MOBIC [Suspect]
     Indication: PAIN
     Dosage: UNK
  2. MOBIC [Suspect]
     Indication: CERVICAL SPINAL STENOSIS
  3. PREVACID [Concomitant]
     Dosage: 30 MG, DAILY
  4. ACETYLSALICYLIC ACID [Concomitant]
     Dosage: 81 MG, UNK
  5. CELEBREX [Suspect]
     Indication: PAIN
     Dosage: UNK
  6. SYSTANE [Concomitant]
     Indication: DRY EYE
     Dosage: UNK
  7. BIOTIN [Concomitant]
     Dosage: UNK
  8. MULTI-VITAMINS [Concomitant]
     Dosage: UNK
  9. FLECTOR [Suspect]
     Indication: CERVICAL SPINAL STENOSIS
  10. VIOXX [Suspect]
     Indication: CERVICAL SPINAL STENOSIS
  11. FLECTOR [Suspect]
     Indication: PAIN
     Dosage: UNK
     Route: 061
     Dates: start: 20110920
  12. PROVIGIL [Concomitant]
     Indication: NARCOLEPSY
     Dosage: UNK
  13. SYMBICORT [Concomitant]
     Indication: ASTHMA
     Dosage: UNK
  14. SINGULAIR [Concomitant]
     Indication: ASTHMA
     Dosage: UNK
  15. CALCIUM CITRATE [Concomitant]
     Dosage: UNK
  16. CELEBREX [Suspect]
     Indication: CERVICAL SPINAL STENOSIS
  17. DOXYCYCLINE [Concomitant]
     Indication: OCULAR DISCOMFORT
     Dosage: 40 MG, DAILY
  18. CIALIS [Concomitant]
     Indication: ERECTILE DYSFUNCTION
     Dosage: 5 MG, DAILY
     Route: 048
  19. CIALIS [Concomitant]
     Indication: PROSTATE CANCER
  20. VITAMIN D [Concomitant]
     Dosage: UNK
  21. FLECTOR [Suspect]
  22. VIOXX [Suspect]
     Indication: PAIN
     Dosage: UNK

REACTIONS (5)
  - DIARRHOEA [None]
  - BLOOD PRESSURE INCREASED [None]
  - FAECES DISCOLOURED [None]
  - OEDEMA [None]
  - ABDOMINAL DISCOMFORT [None]
